FAERS Safety Report 8377592-3 (Version None)
Quarter: 2012Q2

REPORT INFORMATION
  Report Type: 
  Country: None (occurrence: None)
  Receive Date: 20120522
  Receipt Date: 20120511
  Transmission Date: 20120825
  Serious: Yes (Other)
  Sender: FDA-Public Use
  Company Number: NL-JNJFOC-20120213690

PATIENT
  Sex: Female

DRUGS (5)
  1. BLEOMYCIN [Suspect]
     Indication: HODGKIN'S DISEASE
     Route: 065
  2. VINBLASTINE SULFATE [Suspect]
     Indication: HODGKIN'S DISEASE
     Route: 065
  3. DACARBAZINE [Suspect]
     Indication: HODGKIN'S DISEASE
     Route: 065
  4. DOXORUBICIN HYDROCHLORIDE [Suspect]
     Indication: HODGKIN'S DISEASE
     Route: 042
  5. DOXORUBICIN HYDROCHLORIDE [Suspect]
     Route: 065

REACTIONS (1)
  - PREMATURE MENOPAUSE [None]
